FAERS Safety Report 10064846 (Version 1)
Quarter: 2014Q2

REPORT INFORMATION
  Report Type: Spontaneous
  Country: US (occurrence: None)
  Receive Date: 20140404
  Receipt Date: 20140404
  Transmission Date: 20141212
  Serious: Yes (Other)
  Sender: FDA-Public Use
  Company Number: 2014-US-003752

PATIENT
  Age: 63 Year
  Sex: Female

DRUGS (1)
  1. XYREM (SODIUM OXYBATE) ORAL SOLUTION, 500MG/ML [Suspect]
     Indication: FIBROMYALGIA
     Route: 048
     Dates: start: 200908, end: 2009

REACTIONS (2)
  - Diabetes mellitus [None]
  - Off label use [None]
